FAERS Safety Report 17616761 (Version 1)
Quarter: 2020Q2

REPORT INFORMATION
  Report Type: Spontaneous
  Country: US (occurrence: US)
  Receive Date: 20200401
  Receipt Date: 20200401
  Transmission Date: 20200713
  Serious: No
  Sender: FDA-Public Use
  Company Number: None

PATIENT
  Age: 61 Year
  Sex: Male

DRUGS (1)
  1. ZYTIGA [Suspect]
     Active Substance: ABIRATERONE ACETATE
     Route: 048
     Dates: start: 20190220

REACTIONS (6)
  - Muscular weakness [None]
  - Fall [None]
  - Neuralgia [None]
  - Spinal fusion surgery [None]
  - Product dose omission [None]
  - Scar [None]

NARRATIVE: CASE EVENT DATE: 20200320
